FAERS Safety Report 13869807 (Version 2)
Quarter: 2017Q3

REPORT INFORMATION
  Report Type: Spontaneous
  Country: CH (occurrence: CH)
  Receive Date: 20170815
  Receipt Date: 20170822
  Transmission Date: 20171127
  Serious: Yes (Other)
  Sender: FDA-Public Use
  Company Number: CH-HQ SPECIALTY-CH-2017INT000297

PATIENT
  Age: 86 Year
  Sex: Female

DRUGS (1)
  1. DEXMEDETOMIDINE HYDROCHLORIDE. [Suspect]
     Active Substance: DEXMEDETOMIDINE HYDROCHLORIDE
     Indication: SEDATION
     Dosage: 0.02-1.0 MCG/KG/H
     Route: 042

REACTIONS (3)
  - Sedation complication [Recovered/Resolved]
  - Respiratory failure [Recovered/Resolved]
  - Hyperthermia [Recovered/Resolved]
